FAERS Safety Report 19650215 (Version 1)
Quarter: 2021Q3

REPORT INFORMATION
  Report Type: Spontaneous
  Country: US (occurrence: US)
  Receive Date: 20210802
  Receipt Date: 20210802
  Transmission Date: 20211014
  Serious: No
  Sender: FDA-Public Use
  Company Number: US-ASTRAZENECA-2021A620269

PATIENT
  Age: 64 Year
  Sex: Female
  Weight: 54.4 kg

DRUGS (1)
  1. BUDESONIDE AND FORMOTEROL [Suspect]
     Active Substance: BUDESONIDE\FORMOTEROL
     Indication: ASTHMA
     Dosage: BUDESONIDE AND FORMOTEROL 80/4.5MCG 1 PUFF TWICE DAILY
     Route: 055

REACTIONS (6)
  - Asthma [Unknown]
  - Device use issue [Unknown]
  - Dyspnoea [Unknown]
  - Device delivery system issue [Unknown]
  - Product dose omission issue [Unknown]
  - Fatigue [Unknown]

NARRATIVE: CASE EVENT DATE: 2021
